FAERS Safety Report 12119933 (Version 7)
Quarter: 2020Q2

REPORT INFORMATION
  Report Type: Spontaneous
  Country: US (occurrence: US)
  Receive Date: 20160226
  Receipt Date: 20200605
  Transmission Date: 20200713
  Serious: No
  Sender: FDA-Public Use
  Company Number: US-ACTELION PHARMACEUTICALS US, INC.-A-NJ2016-131498

PATIENT
  Age: 48 Year
  Sex: Female

DRUGS (5)
  1. VELETRI [Suspect]
     Active Substance: EPOPROSTENOL
     Indication: PULMONARY ARTERIAL HYPERTENSION
     Dosage: 23 NG/KG, PER MIN
     Route: 042
     Dates: start: 20150902
  2. SILDENAFIL. [Concomitant]
     Active Substance: SILDENAFIL
  3. OPSUMIT [Suspect]
     Active Substance: MACITENTAN
     Indication: PULMONARY ARTERIAL HYPERTENSION
     Dosage: 10 MG, QD
     Route: 048
     Dates: start: 20160205, end: 20160511
  4. CHLORAPREP [Suspect]
     Active Substance: CHLORHEXIDINE GLUCONATE\ISOPROPYL ALCOHOL
     Indication: PRODUCT USED FOR UNKNOWN INDICATION
     Dosage: UNK
     Route: 061
  5. COUMADIN [Concomitant]
     Active Substance: WARFARIN SODIUM

REACTIONS (21)
  - Condition aggravated [Unknown]
  - Pain in extremity [Unknown]
  - Weight increased [Unknown]
  - Catheter site dryness [Unknown]
  - Fatigue [Unknown]
  - Feeling abnormal [Unknown]
  - Asthenia [Unknown]
  - Oedema [Unknown]
  - Rash pruritic [Not Recovered/Not Resolved]
  - Haemoglobin decreased [Unknown]
  - Hypoaesthesia [Unknown]
  - Fluid retention [Unknown]
  - Suture rupture [Unknown]
  - Anaemia [Unknown]
  - Oxygen saturation decreased [Unknown]
  - Neuralgia [Not Recovered/Not Resolved]
  - Quality of life decreased [Unknown]
  - Gait disturbance [Unknown]
  - Decreased appetite [Unknown]
  - Application site rash [Not Recovered/Not Resolved]
  - Diarrhoea [Unknown]

NARRATIVE: CASE EVENT DATE: 201602
